FAERS Safety Report 6863328-1 (Version None)
Quarter: 2010Q3

REPORT INFORMATION
  Report Type: 
  Country: None (occurrence: None)
  Receive Date: 20100721
  Receipt Date: 20100713
  Transmission Date: 20110219
  Serious: Yes (Disabling)
  Sender: FDA-Public Use
  Company Number: US-NAPPMUNDI-USA-2010-0044178

PATIENT
  Age: 24 Year
  Sex: Female

DRUGS (1)
  1. DILAUDID-HP [Suspect]
     Indication: PRODUCT USED FOR UNKNOWN INDICATION
     Dosage: UNK

REACTIONS (1)
  - GENERAL PHYSICAL HEALTH DETERIORATION [None]
